FAERS Safety Report 7833637-8 (Version None)
Quarter: 2011Q4

REPORT INFORMATION
  Report Type: 
  Country: None (occurrence: None)
  Receive Date: 20111024
  Receipt Date: 20110902
  Transmission Date: 20120403
  Serious: Yes (Hospitalization, Other)
  Sender: FDA-Public Use
  Company Number: US-BAYER-2011-061800

PATIENT
  Age: 77 Year
  Sex: Male

DRUGS (8)
  1. XELODA [Concomitant]
  2. SORAFENIB (RAF KINASE INHIBITOR) [Suspect]
     Dosage: 400 MG, BID
     Route: 048
     Dates: start: 20110728, end: 20110819
  3. ACETAMINOPHEN [Concomitant]
     Route: 048
  4. SORAFENIB (RAF KINASE INHIBITOR) [Suspect]
     Dosage: 200 MG, BID
     Dates: start: 20110829
  5. TAXOTERE [Concomitant]
     Route: 042
  6. GEMZAR [Concomitant]
  7. TARCEVA [Concomitant]
  8. SORAFENIB (RAF KINASE INHIBITOR) [Suspect]
     Indication: PANCREATIC CARCINOMA
     Dosage: 200 MG, BID FOR 4 DAYS WEEKLY
     Dates: start: 20110706

REACTIONS (19)
  - OEDEMA PERIPHERAL [None]
  - CELLULITIS [None]
  - BLOOD ALBUMIN DECREASED [None]
  - DIARRHOEA [None]
  - ASCITES [None]
  - BRONCHITIS [None]
  - ERYTHEMA [None]
  - BODY TEMPERATURE INCREASED [None]
  - INFECTION [None]
  - HYPERTENSION [None]
  - PYREXIA [None]
  - ANAEMIA [None]
  - RASH ERYTHEMATOUS [None]
  - OXYGEN SATURATION DECREASED [None]
  - BLOOD COUNT ABNORMAL [None]
  - COUGH [None]
  - PLATELET COUNT DECREASED [None]
  - DYSPNOEA [None]
  - DYSPHONIA [None]
